FAERS Safety Report 6465826-1 (Version None)
Quarter: 2009Q4

REPORT INFORMATION
  Report Type: 
  Country: None (occurrence: None)
  Receive Date: 20091124
  Receipt Date: 20091116
  Transmission Date: 20100525
  Serious: Yes (Hospitalization)
  Sender: FDA-Public Use
  Company Number: TCI2009A04592

PATIENT
  Age: 72 Year
  Sex: Female

DRUGS (4)
  1. ACTOS [Suspect]
     Indication: TYPE 2 DIABETES MELLITUS
     Dosage: 15 MG (16 MG, 1 IN 1 D), PER ORAL
     Route: 048
     Dates: start: 20090703, end: 20090910
  2. METFORMIN HYDROCHLORIDE [Suspect]
     Indication: TYPE 2 DIABETES MELLITUS
     Dosage: 750 MG (250 MG, 2 IN 1 D), PER ORAL
     Route: 048
     Dates: start: 20090814, end: 20090910
  3. AMLODIPINE BESYLATE [Concomitant]
  4. URSODIOL [Concomitant]

REACTIONS (6)
  - DEPRESSED LEVEL OF CONSCIOUSNESS [None]
  - DIZZINESS [None]
  - HEPATIC FAILURE [None]
  - HYPERAMMONAEMIA [None]
  - MENTAL DISORDER [None]
  - TREMOR [None]
